FAERS Safety Report 8491196-3 (Version None)
Quarter: 2012Q3

REPORT INFORMATION
  Report Type: 
  Country: None (occurrence: None)
  Receive Date: 20120706
  Receipt Date: 20120703
  Transmission Date: 20120928
  Serious: Yes (Hospitalization)
  Sender: FDA-Public Use
  Company Number: US-MYLANLABS-2012S1008508

PATIENT
  Sex: Male

DRUGS (2)
  1. ANTIINFLAMMATORY AGENTS, NON-STEROIDS [Suspect]
  2. SOTRADECOL [Suspect]
     Indication: SCLEROTHERAPY
     Route: 042
     Dates: start: 20120312, end: 20120312

REACTIONS (8)
  - UROSEPSIS [None]
  - NAUSEA [None]
  - RENAL FAILURE [None]
  - HEPATIC FAILURE [None]
  - VOMITING [None]
  - BLOOD UREA INCREASED [None]
  - BLOOD CREATININE INCREASED [None]
  - DEHYDRATION [None]
